FAERS Safety Report 15452563 (Version 1)
Quarter: 2018Q4

REPORT INFORMATION
  Report Type: Report from Study
  Country: US (occurrence: US)
  Receive Date: 20181001
  Receipt Date: 20181001
  Transmission Date: 20190204
  Serious: Yes (Hospitalization)
  Sender: FDA-Public Use
  Company Number: US-JAZZ-2018-US-009679

PATIENT
  Age: 21 Year
  Sex: Female

DRUGS (5)
  1. XYREM [Suspect]
     Active Substance: SODIUM OXYBATE
     Dosage: 3.25 G, BID
     Route: 048
     Dates: start: 2018, end: 2018
  2. XYREM [Suspect]
     Active Substance: SODIUM OXYBATE
     Dosage: 2.75 G, BID
     Route: 048
     Dates: start: 2018, end: 201808
  3. XYREM [Suspect]
     Active Substance: SODIUM OXYBATE
     Dosage: 3 G, BID
     Route: 048
     Dates: start: 201806, end: 201806
  4. XYREM [Suspect]
     Active Substance: SODIUM OXYBATE
     Indication: NARCOLEPSY
     Dosage: 2.25 G, BID
     Route: 048
     Dates: start: 201806, end: 201806
  5. XYREM [Suspect]
     Active Substance: SODIUM OXYBATE
     Dosage: 3.75 G, BID
     Route: 048
     Dates: start: 20180613, end: 2018

REACTIONS (11)
  - Burning sensation [Not Recovered/Not Resolved]
  - Vomiting [Unknown]
  - Headache [Recovering/Resolving]
  - Arthralgia [Unknown]
  - Diarrhoea [Unknown]
  - Hyperhidrosis [Not Recovered/Not Resolved]
  - Pain [Unknown]
  - Asthenopia [Not Recovered/Not Resolved]
  - Tremor [Recovered/Resolved]
  - Hypoaesthesia [Not Recovered/Not Resolved]
  - Anxiety [Recovered/Resolved]

NARRATIVE: CASE EVENT DATE: 2018
